FAERS Safety Report 8891081 (Version 3)
Quarter: 2012Q4

REPORT INFORMATION
  Report Type: Report from Study
  Country: AU (occurrence: AU)
  Receive Date: 20121107
  Receipt Date: 20121210
  Transmission Date: 20130627
  Serious: Yes (Hospitalization)
  Sender: FDA-Public Use
  Company Number: AU-PFIZER INC-2012274260

PATIENT
  Age: 52 Year
  Sex: Male
  Weight: 77.35 kg

DRUGS (14)
  1. DOXORUBICIN HCL [Suspect]
     Indication: B-CELL LYMPHOMA
     Dosage: 100 mg, every 3 weeks
     Route: 042
     Dates: start: 20120918
  2. VINCRISTINE SULFATE [Suspect]
     Indication: B-CELL LYMPHOMA
     Dosage: 2 mg, every 3 weeks
     Route: 042
     Dates: start: 20120918
  3. CYCLOPHOSPHAMIDE [Suspect]
     Indication: B-CELL LYMPHOMA
     Dosage: 1480 mg, every 3 weeks
     Route: 042
     Dates: start: 20120918
  4. PREDNISOLONE [Suspect]
     Indication: B-CELL LYMPHOMA
     Dosage: 100 mg, every 3 weeks
     Route: 048
     Dates: start: 20120918
  5. OBINUTUZUMAB [Suspect]
     Indication: B-CELL LYMPHOMA
     Dosage: 4 mg/ml, 250ml every 3 weeks
     Route: 042
     Dates: start: 20120917
  6. ENDONE [Concomitant]
     Indication: PAIN
  7. DEXAMETHASONE [Concomitant]
     Indication: PAIN
  8. ALLOPURINOL [Concomitant]
     Dosage: UNK
     Dates: start: 20120917, end: 20121008
  9. TEMAZEPAM [Concomitant]
     Indication: INSOMNIA
     Dosage: UNK
     Dates: start: 20120917
  10. PARACETAMOL [Concomitant]
     Dosage: UNK
     Dates: start: 20120925, end: 20120925
  11. PARACETAMOL [Concomitant]
     Dosage: UNK
     Dates: start: 20121009, end: 20121009
  12. CLARATYNE [Concomitant]
     Dosage: UNK
     Dates: start: 20121002, end: 20121002
  13. CLARATYNE [Concomitant]
     Dosage: UNK
     Dates: start: 20121009, end: 20121009
  14. ZOFRAN [Concomitant]
     Dosage: UNK
     Dates: start: 20121009, end: 20121009

REACTIONS (1)
  - Pneumonia [Unknown]
